FAERS Safety Report 10447338 (Version 2)
Quarter: 2014Q3

REPORT INFORMATION
  Report Type: Report from Study
  Country: US (occurrence: US)
  Receive Date: 20140911
  Receipt Date: 20140911
  Transmission Date: 20150326
  Serious: Yes (Hospitalization, Other)
  Sender: FDA-Public Use
  Company Number: US-ABBVIE-14P-163-1273156-00

PATIENT
  Age: 32 Year
  Sex: Female

DRUGS (3)
  1. HUMIRA [Suspect]
     Active Substance: ADALIMUMAB
     Dates: start: 201208
  2. HUMIRA [Suspect]
     Active Substance: ADALIMUMAB
     Indication: CROHN^S DISEASE
     Dates: end: 201102
  3. HUMIRA [Suspect]
     Active Substance: ADALIMUMAB
     Dates: end: 201202

REACTIONS (12)
  - Ileectomy [Recovering/Resolving]
  - Diarrhoea [Recovering/Resolving]
  - Menorrhagia [Unknown]
  - Iron deficiency anaemia [Unknown]
  - Abdominal pain [Recovering/Resolving]
  - Post procedural infection [Recovering/Resolving]
  - Post procedural sepsis [Recovering/Resolving]
  - Injection site pain [Not Recovered/Not Resolved]
  - Colectomy [Recovering/Resolving]
  - Anxiety [Unknown]
  - Fistula [Recovering/Resolving]
  - Fungal infection [Not Recovered/Not Resolved]

NARRATIVE: CASE EVENT DATE: 201102
